FAERS Safety Report 9444403 (Version 1)
Quarter: 2013Q3

REPORT INFORMATION
  Report Type: Spontaneous
  Country: US (occurrence: None)
  Receive Date: 20130806
  Receipt Date: 20130806
  Transmission Date: 20140515
  Serious: Yes (Other)
  Sender: FDA-Public Use
  Company Number: None

PATIENT
  Age: 62 Year
  Sex: Female
  Weight: 58.97 kg

DRUGS (1)
  1. AZITHROMYCIN [Suspect]
     Indication: SINUSITIS

REACTIONS (28)
  - Chest pain [None]
  - Palpitations [None]
  - Palpitations [None]
  - Middle insomnia [None]
  - Pain [None]
  - Chest discomfort [None]
  - Muscle tightness [None]
  - Pain in extremity [None]
  - Hyperhidrosis [None]
  - Asthenia [None]
  - Tremor [None]
  - Chills [None]
  - Blood pressure increased [None]
  - Heart rate increased [None]
  - Loss of consciousness [None]
  - Blood pressure decreased [None]
  - Gastrooesophageal reflux disease [None]
  - Burning sensation [None]
  - Faecal incontinence [None]
  - Diarrhoea [None]
  - Fear [None]
  - Feeling abnormal [None]
  - Nodal rhythm [None]
  - Extrasystoles [None]
  - Ventricular extrasystoles [None]
  - Tachycardia [None]
  - Bradycardia [None]
  - Supraventricular extrasystoles [None]
